FAERS Safety Report 10047226 (Version 1)
Quarter: 2014Q1

REPORT INFORMATION
  Report Type: Spontaneous
  Country: US (occurrence: US)
  Receive Date: 20140331
  Receipt Date: 20140331
  Transmission Date: 20141002
  Serious: No
  Sender: FDA-Public Use
  Company Number: US-MYLANLABS-2013S1021709

PATIENT
  Age: 58 Year
  Sex: Male

DRUGS (1)
  1. FENTANYL TRANSDERMAL SYSTEM [Suspect]
     Route: 062

REACTIONS (2)
  - Drug screen positive [Not Recovered/Not Resolved]
  - No adverse event [Not Recovered/Not Resolved]
